FAERS Safety Report 23476294 (Version 1)
Quarter: 2024Q1

REPORT INFORMATION
  Report Type: Report from Study
  Country: US (occurrence: US)
  Receive Date: 20240204
  Receipt Date: 20240204
  Transmission Date: 20240410
  Serious: No
  Sender: FDA-Public Use
  Company Number: US-EXELIXIS-CABO-23062424

PATIENT
  Age: 61 Year
  Sex: Female

DRUGS (8)
  1. CABOMETYX [Suspect]
     Active Substance: CABOZANTINIB S-MALATE
     Indication: Adrenal gland cancer
     Dosage: 40 MG, QD
     Dates: start: 20230308
  2. METOPROLOL SUCCINATE [Concomitant]
     Active Substance: METOPROLOL SUCCINATE
  3. ALPRAZOLAM [Concomitant]
     Active Substance: ALPRAZOLAM
  4. VITAMIN D NOS [Concomitant]
     Active Substance: VITAMIN D NOS
  5. ATORVASTATIN [Concomitant]
     Active Substance: ATORVASTATIN
  6. PROBIOTICS NOS [Concomitant]
     Active Substance: PROBIOTICS NOS
  7. SENOKOT [Concomitant]
     Active Substance: SENNOSIDES
  8. IMODIUM [Concomitant]
     Active Substance: LOPERAMIDE HYDROCHLORIDE

REACTIONS (17)
  - Neck pain [Recovered/Resolved]
  - Nasal dryness [Unknown]
  - Palpitations [Recovered/Resolved]
  - Rhinalgia [Unknown]
  - Epistaxis [Unknown]
  - Pain in extremity [Recovering/Resolving]
  - Retching [Recovered/Resolved]
  - Dry mouth [Recovering/Resolving]
  - Constipation [Recovered/Resolved]
  - Dry skin [Unknown]
  - Blood pressure increased [Recovering/Resolving]
  - Headache [Recovered/Resolved]
  - Abdominal pain [Unknown]
  - Fatigue [Unknown]
  - Diarrhoea [Unknown]
  - Vomiting [Unknown]
  - Off label use [Unknown]

NARRATIVE: CASE EVENT DATE: 20230301
